FAERS Safety Report 13132373 (Version 3)
Quarter: 2017Q1

REPORT INFORMATION
  Report Type: Report from Study
  Country: None (occurrence: DE)
  Receive Date: 20170120
  Receipt Date: 20170214
  Transmission Date: 20170428
  Serious: Yes (Hospitalization)
  Sender: FDA-Public Use
  Company Number: DE-ABBVIE-17P-062-1839655-00

PATIENT
  Sex: Female

DRUGS (11)
  1. DUODOPA [Suspect]
     Active Substance: CARBIDOPA\LEVODOPA
     Dosage: MD 7.5 ML, CRD 3.1 ML/HR, CRN 3.1 ML/HR, ED 3.6 ML
     Route: 050
  2. ZOLPIDEM [Concomitant]
     Active Substance: ZOLPIDEM\ZOLPIDEM TARTRATE
     Indication: PRODUCT USED FOR UNKNOWN INDICATION
  3. SIFROL RET [Concomitant]
     Active Substance: PRAMIPEXOLE
     Indication: PRODUCT USED FOR UNKNOWN INDICATION
  4. NOVALGIN [Concomitant]
     Active Substance: METAMIZOLE SODIUM
     Indication: PRODUCT USED FOR UNKNOWN INDICATION
  5. DUODOPA [Suspect]
     Active Substance: CARBIDOPA\LEVODOPA
     Indication: PARKINSON^S DISEASE
     Dosage: MD 7.5 ML; CRD 3.3 ML/H; CRN 3.3 ML/H; ED 4 ML
     Route: 050
     Dates: start: 20161017
  6. HYDROXYCARBAMED [Concomitant]
     Indication: PRODUCT USED FOR UNKNOWN INDICATION
  7. TARGIN RET [Concomitant]
     Indication: PRODUCT USED FOR UNKNOWN INDICATION
  8. SIFROL RET [Concomitant]
     Active Substance: PRAMIPEXOLE
  9. CYMBALTA [Concomitant]
     Active Substance: DULOXETINE HYDROCHLORIDE
     Indication: PRODUCT USED FOR UNKNOWN INDICATION
  10. PANTOZOL [Concomitant]
     Active Substance: PANTOPRAZOLE SODIUM
     Indication: PRODUCT USED FOR UNKNOWN INDICATION
  11. MARCUMAR [Concomitant]
     Active Substance: PHENPROCOUMON
     Indication: PRODUCT USED FOR UNKNOWN INDICATION
     Dosage: ACCORDING TO UNSPECIFIED SCHEDULE

REACTIONS (7)
  - Back pain [Recovering/Resolving]
  - Intentional product misuse [Not Recovered/Not Resolved]
  - Nervousness [Not Recovered/Not Resolved]
  - Spinal fracture [Recovering/Resolving]
  - Extra dose administered [Not Recovered/Not Resolved]
  - Nausea [Not Recovered/Not Resolved]
  - Tremor [Not Recovered/Not Resolved]

NARRATIVE: CASE EVENT DATE: 2017
